FAERS Safety Report 21106386 (Version 2)
Quarter: 2023Q1

REPORT INFORMATION
  Report Type: Spontaneous
  Country: US (occurrence: US)
  Receive Date: 20220720
  Receipt Date: 20230103
  Transmission Date: 20230418
  Serious: No
  Sender: FDA-Public Use
  Company Number: US-PFIZER INC-202200979596

PATIENT
  Age: 63 Year
  Sex: Female

DRUGS (1)
  1. INLYTA [Suspect]
     Active Substance: AXITINIB
     Dosage: 5 MG, DAILY (TAKE 2 (5MG) TABLETS BY MOUTH DAILY)
     Route: 048
     Dates: start: 20220519, end: 20221209

REACTIONS (9)
  - Headache [Recovering/Resolving]
  - Sneezing [Unknown]
  - Motion sickness [Unknown]
  - Pain [Unknown]
  - Nausea [Unknown]
  - Scratch [Unknown]
  - Tenderness [Not Recovered/Not Resolved]
  - Myalgia [Unknown]
  - Loss of personal independence in daily activities [Unknown]
